FAERS Safety Report 7230821-1 (Version None)
Quarter: 2011Q1

REPORT INFORMATION
  Report Type: 
  Country: None (occurrence: None)
  Receive Date: 20110118
  Receipt Date: 20110113
  Transmission Date: 20110831
  Serious: Yes (Disabling)
  Sender: FDA-Public Use
  Company Number: IT-ELI_LILLY_AND_COMPANY-IT201012001222

PATIENT
  Sex: Female
  Weight: 45 kg

DRUGS (3)
  1. TOLEP [Concomitant]
     Dosage: 300 MG, UNK
     Route: 048
  2. SOMATROPIN RDNA [Suspect]
     Indication: GROWTH HORMONE DEFICIENCY
     Dosage: 0.2 MG, DAILY (1/D)
     Route: 058
     Dates: start: 20000523
  3. EUTIROX [Concomitant]
     Indication: HYPOTHYROIDISM
     Dosage: 75 MG, ORAL
     Route: 048
     Dates: start: 19870131

REACTIONS (1)
  - MEDULLOBLASTOMA RECURRENT [None]
